FAERS Safety Report 6293046-2 (Version None)
Quarter: 2009Q3

REPORT INFORMATION
  Report Type: 
  Country: None (occurrence: None)
  Receive Date: 20090731
  Receipt Date: 20090729
  Transmission Date: 20100115
  Serious: Yes (Hospitalization)
  Sender: FDA-Public Use
  Company Number: FR-BRISTOL-MYERS SQUIBB COMPANY-14678866

PATIENT
  Age: 25 Year
  Sex: Female

DRUGS (6)
  1. REYATAZ [Suspect]
     Route: 048
     Dates: start: 20090324, end: 20090423
  2. TRUVADA [Suspect]
     Dosage: 1 DOSAGE FORM = 1 INTAKE 24MAR09-24APR09 REINTRODUCED ON 1JUN09
     Route: 048
     Dates: start: 20090324
  3. NORVIR [Suspect]
     Route: 048
     Dates: start: 20090324, end: 20090423
  4. ADIAZINE [Suspect]
     Dosage: ON 24MAR09, 50% DECREASE IN ADIAZINE DOSE(500MG TWICE A DAY)
     Route: 048
     Dates: start: 20090201, end: 20090423
  5. MALOCIDE [Suspect]
     Dosage: ON 24MAR09, 50% DECREASE IN MALOCIDE DOSE(50MG DAILY)
     Route: 048
     Dates: start: 20090201, end: 20090423
  6. KEPPRA [Concomitant]
     Route: 048
     Dates: start: 20090201

REACTIONS (2)
  - ABDOMINAL PAIN [None]
  - CYTOLYTIC HEPATITIS [None]
